FAERS Safety Report 8369413-X (Version None)
Quarter: 2012Q2

REPORT INFORMATION
  Report Type: 
  Country: None (occurrence: None)
  Receive Date: 20120518
  Receipt Date: 20120508
  Transmission Date: 20120825
  Serious: Yes (Death, Other)
  Sender: FDA-Public Use
  Company Number: US-PFIZER INC-2012084301

PATIENT
  Sex: Female

DRUGS (9)
  1. MORPHINE SULFATE [Suspect]
     Indication: PRODUCT USED FOR UNKNOWN INDICATION
     Dosage: UNK
  2. VENLAFAXINE [Concomitant]
     Dosage: UNK
  3. OXYCODONE HYDROCHLORIDE [Suspect]
     Indication: PRODUCT USED FOR UNKNOWN INDICATION
     Dosage: UNK
  4. CLONAZEPAM [Suspect]
     Indication: PRODUCT USED FOR UNKNOWN INDICATION
     Dosage: UNK
  5. LIDOCAINE [Concomitant]
     Dosage: UNK
  6. TEMAZEPAM [Concomitant]
     Dosage: UNK
  7. MEPROBAMATE [Concomitant]
     Dosage: UNK
  8. CHLORAL HYDRATE [Concomitant]
     Dosage: UNK
  9. PROMETHAZINE [Concomitant]
     Dosage: UNK

REACTIONS (4)
  - ACCIDENTAL DEATH [None]
  - ACCIDENTAL OVERDOSE [None]
  - TOXICITY TO VARIOUS AGENTS [None]
  - DRUG ABUSE [None]
